FAERS Safety Report 7986440-2 (Version None)
Quarter: 2011Q4

REPORT INFORMATION
  Report Type: 
  Country: None (occurrence: None)
  Receive Date: 20111216
  Receipt Date: 20110718
  Transmission Date: 20120403
  Serious: No
  Sender: FDA-Public Use
  Company Number: US-BRISTOL-MYERS SQUIBB COMPANY-15896525

PATIENT
  Age: 22 Year
  Sex: Female

DRUGS (4)
  1. LEXAPRO [Suspect]
     Dosage: 10MG ON 12AUG10 FEW WEEKS REST 20MG ON 11MAR11 AGAIN 30MG 16MAY11.
     Dates: start: 20100812
  2. ABILIFY [Suspect]
     Indication: DEPRESSION
     Dosage: RESTARTED ON 11MAR2011
     Route: 048
     Dates: start: 20110311, end: 20110712
  3. ABILIFY [Suspect]
     Indication: OBSESSIVE THOUGHTS
     Dosage: RESTARTED ON 11MAR2011
     Route: 048
     Dates: start: 20110311, end: 20110712
  4. ABILIFY [Suspect]
     Indication: ANXIETY
     Dosage: RESTARTED ON 11MAR2011
     Route: 048
     Dates: start: 20110311, end: 20110712

REACTIONS (3)
  - DIZZINESS [None]
  - BRADYCARDIA [None]
  - FATIGUE [None]
